FAERS Safety Report 7686914-8 (Version None)
Quarter: 2011Q3

REPORT INFORMATION
  Report Type: 
  Country: None (occurrence: None)
  Receive Date: 20110816
  Receipt Date: 20110808
  Transmission Date: 20111222
  Serious: Yes (Other)
  Sender: FDA-Public Use
  Company Number: US-GENENTECH-305654

PATIENT

DRUGS (14)
  1. DOXORUBICIN HCL [Suspect]
     Indication: B-CELL LYMPHOMA
     Dosage: UNK
     Route: 065
  2. PEGFILGRASTIM [Concomitant]
     Indication: PRODUCT USED FOR UNKNOWN INDICATION
     Dosage: UNK
  3. CYCLOPHOSPHAMIDE [Suspect]
     Indication: B-CELL LYMPHOMA
     Dosage: UNK
     Route: 065
  4. CYCLOPHOSPHAMIDE [Suspect]
     Route: 065
  5. VINCRISTINE [Suspect]
     Route: 065
  6. ASPIRIN [Concomitant]
     Indication: PROPHYLAXIS
  7. LENALIDOMIDE [Suspect]
     Indication: B-CELL LYMPHOMA
     Dosage: UNK
     Route: 065
  8. LENALIDOMIDE [Suspect]
     Dosage: 25 MG, UNK
     Route: 065
  9. VINCRISTINE [Suspect]
     Indication: B-CELL LYMPHOMA
     Dosage: UNK
     Route: 065
  10. DOXORUBICIN HCL [Suspect]
     Route: 065
  11. PREDNISOLONE [Suspect]
     Indication: B-CELL LYMPHOMA
     Dosage: UNK
     Route: 065
  12. RITUXIMAB [Suspect]
     Indication: B-CELL LYMPHOMA
     Dosage: UNK
     Route: 065
  13. RITUXIMAB [Suspect]
     Route: 065
  14. PREDNISOLONE [Suspect]
     Route: 065

REACTIONS (7)
  - FEBRILE NEUTROPENIA [None]
  - DEHYDRATION [None]
  - NEUTROPENIA [None]
  - THROMBOCYTOPENIA [None]
  - FATIGUE [None]
  - NEUROPATHY PERIPHERAL [None]
  - THROMBOSIS [None]
